FAERS Safety Report 15030429 (Version 1)
Quarter: 2018Q2

REPORT INFORMATION
  Report Type: Spontaneous
  Country: GB (occurrence: GB)
  Receive Date: 20180619
  Receipt Date: 20180619
  Transmission Date: 20180711
  Serious: Yes (Other)
  Sender: FDA-Public Use
  Company Number: GB-TEVA-2018-GB-911500

PATIENT
  Age: 24 Year
  Sex: Female
  Weight: 51 kg

DRUGS (1)
  1. CIPROFLOXACIN. [Suspect]
     Active Substance: CIPROFLOXACIN
     Indication: MASTITIS POSTPARTUM
     Dosage: 1000 MILLIGRAM DAILY;
     Route: 048
     Dates: start: 20180508, end: 20180510

REACTIONS (2)
  - Abdominal pain upper [Unknown]
  - Vomiting [Unknown]
